FAERS Safety Report 5082108-3 (Version None)
Quarter: 2006Q3

REPORT INFORMATION
  Report Type: 
  Country: None (occurrence: None)
  Receive Date: 20060817
  Receipt Date: 20060808
  Transmission Date: 20061208
  Serious: Yes (Other)
  Sender: FDA-Public Use
  Company Number: US-BAYER-200613356BCC

PATIENT
  Age: 79 Year
  Sex: Male
  Weight: 96 kg

DRUGS (5)
  1. ALEVE [Suspect]
     Indication: PAIN
     Dosage: UNIT DOSE: 220 MG
     Route: 048
  2. PLAVIX [Concomitant]
  3. LIPITOR [Concomitant]
  4. OXYCONTIN [Concomitant]
  5. REQUIP [Concomitant]

REACTIONS (4)
  - HEPATIC ENZYME INCREASED [None]
  - JOINT SURGERY [None]
  - RENAL IMPAIRMENT [None]
  - STAPHYLOCOCCAL INFECTION [None]
